FAERS Safety Report 22255385 (Version 2)
Quarter: 2023Q2

REPORT INFORMATION
  Report Type: Spontaneous
  Country: US (occurrence: US)
  Receive Date: 20230426
  Receipt Date: 20230430
  Transmission Date: 20230722
  Serious: No
  Sender: FDA-Public Use
  Company Number: US-002147023-NVSC2023US093668

PATIENT
  Sex: Female

DRUGS (1)
  1. AMOXICILLIN [Suspect]
     Active Substance: AMOXICILLIN
     Indication: Sinus disorder
     Dosage: 1 DOSAGE FORM (FREQUENCY: ONLY HOUR BEFORE DENTAL WORK) (NDC: 07812613)
     Route: 065

REACTIONS (5)
  - Dyspnoea [Unknown]
  - Mouth swelling [Unknown]
  - Pharyngeal inflammation [Not Recovered/Not Resolved]
  - Paraesthesia oral [Not Recovered/Not Resolved]
  - Paraesthesia [Not Recovered/Not Resolved]
